FAERS Safety Report 9293356 (Version 1)
Quarter: 2013Q2

REPORT INFORMATION
  Report Type: Spontaneous
  Country: US (occurrence: US)
  Receive Date: 20130516
  Receipt Date: 20130516
  Transmission Date: 20140414
  Serious: No
  Sender: FDA-Public Use
  Company Number: US-TARO-2012P1060986

PATIENT
  Age: 53 Year
  Sex: Male
  Weight: 86.64 kg

DRUGS (15)
  1. CARBAMAZEPINE EXTENDED RELEASE TABLETS USP 100MG [Suspect]
     Indication: BIPOLAR DISORDER
     Route: 048
     Dates: end: 201208
  2. CARBAMAZEPINE EXTENDED RELEASE TABLETS USP 100MG [Suspect]
     Indication: BIPOLAR DISORDER
     Dates: start: 2011, end: 2011
  3. CARBAMAZEPINE EXTENDED RELEASE TABLETS USP 100MG [Suspect]
     Indication: BIPOLAR DISORDER
     Route: 048
     Dates: start: 201208
  4. CARBAMAZEPINE EXTENDED RELEASE TABLETS USP 400MG [Suspect]
     Indication: BIPOLAR DISORDER
     Route: 048
     Dates: end: 201208
  5. CARBAMAZEPINE EXTENDED RELEASE TABLETS USP 400MG [Suspect]
     Indication: BIPOLAR DISORDER
     Route: 048
     Dates: start: 201208
  6. PRAZOSIN (PRAZOCIN) [Concomitant]
     Dates: start: 2007, end: 20121007
  7. PRAZOSIN (PRAZOCIN) [Concomitant]
     Dates: start: 20121008
  8. PRAVASTATIN [Concomitant]
     Indication: BLOOD CHOLESTEROL INCREASED
  9. GLUCOSAMINE HCI 15 MG WITH MSM 15MG [Concomitant]
  10. MATURE MULTIVITAMIN ONCE A DAY (ALSO HAS LYCOPENE LUTEIN CALCIUM) [Concomitant]
  11. OMEGA 3 FISH 1000 MG OMEGA 3 FATTY ACID 300MG [Concomitant]
  12. ASPIRIN [Concomitant]
  13. VITAMIN D3 [Concomitant]
  14. DOCUSATE [Concomitant]
  15. ADVIL [Concomitant]
     Indication: PAIN

REACTIONS (10)
  - Off label use [Not Recovered/Not Resolved]
  - Drug level below therapeutic [Not Recovered/Not Resolved]
  - Drug ineffective for unapproved indication [Unknown]
  - Frustration [Unknown]
  - Medication residue present [Unknown]
  - Anxiety [Unknown]
  - Hostility [Unknown]
  - Impatience [Unknown]
  - Anger [Unknown]
  - Thinking abnormal [Unknown]
